FAERS Safety Report 7919138-7 (Version None)
Quarter: 2011Q4

REPORT INFORMATION
  Report Type: 
  Country: None (occurrence: None)
  Receive Date: 20111117
  Receipt Date: 20111107
  Transmission Date: 20120403
  Serious: Yes (Hospitalization)
  Sender: FDA-Public Use
  Company Number: US-ROCHE-1011712

PATIENT

DRUGS (6)
  1. DEXAMETHASONE [Suspect]
     Indication: PRODUCT USED FOR UNKNOWN INDICATION
  2. PACLITAXEL [Suspect]
     Indication: BREAST CANCER
     Dosage: OVER 60 MIN
     Route: 042
  3. EPIRUBICIN HYDROCHLORIDE [Suspect]
     Indication: BREAST CANCER
     Dosage: OVER 15 MIN ON DAY1
     Route: 042
     Dates: start: 20090326
  4. CYCLOPHOSPHAMIDE [Suspect]
     Indication: BREAST CANCER
     Dosage: OVER 30 MIN ON DAY1
     Route: 042
     Dates: start: 20090326
  5. HERCEPTIN [Suspect]
     Indication: BREAST CANCER
     Dosage: OVER 90 MIN WEEK1, THEN 2 MG/KG OVER 30 MIN FOR REMAININ 11 WEEKS
     Route: 042
  6. FLUOROURACIL [Suspect]
     Indication: BREAST CANCER
     Dosage: ROUTE:IVP ON DAY1
     Dates: start: 20090326

REACTIONS (4)
  - HYPERGLYCAEMIA [None]
  - VENTRICULAR ARRHYTHMIA [None]
  - GLUCOSE TOLERANCE IMPAIRED [None]
  - EMBOLISM [None]
